FAERS Safety Report 8514640-1 (Version None)
Quarter: 2012Q3

REPORT INFORMATION
  Report Type: 
  Country: None (occurrence: None)
  Receive Date: 20120712
  Receipt Date: 20120712
  Transmission Date: 20120928
  Serious: Yes (Other)
  Sender: FDA-Public Use
  Company Number: None

PATIENT
  Sex: Female
  Weight: 58.9676 kg

DRUGS (1)
  1. LEVULAN [Suspect]
     Indication: HYPERKERATOSIS
     Dates: start: 20120117

REACTIONS (4)
  - ERYTHEMA [None]
  - BACTERIAL INFECTION [None]
  - SKIN DISCOLOURATION [None]
  - SKIN DISORDER [None]
